FAERS Safety Report 5278608-3 (Version None)
Quarter: 2007Q1

REPORT INFORMATION
  Report Type: 
  Country: None (occurrence: None)
  Receive Date: 20070328
  Receipt Date: 20070321
  Transmission Date: 20070707
  Serious: Yes (Death)
  Sender: FDA-Public Use
  Company Number: AU-GLAXOSMITHKLINE-B0458122A

PATIENT
  Age: 77 Year
  Sex: Male

DRUGS (9)
  1. AVANDAMET [Suspect]
     Indication: DRUG USE FOR UNKNOWN INDICATION
     Route: 048
     Dates: start: 20061208
  2. NITROGLYCERIN [Suspect]
     Route: 048
     Dates: start: 20070115
  3. LIPITOR [Concomitant]
     Dosage: 40MG PER DAY
     Route: 048
  4. GLYADE [Concomitant]
     Dosage: 80MG TWICE PER DAY
  5. CARVEDILOL [Concomitant]
     Dosage: 25MG TWICE PER DAY
  6. IMDUR [Concomitant]
     Dosage: 60MG PER DAY
  7. NOTEN [Concomitant]
     Dosage: 50MG PER DAY
     Route: 048
  8. DIAFORMIN [Concomitant]
     Dosage: 1000MG TWICE PER DAY
     Route: 048
  9. DIAMICRON [Concomitant]
     Dosage: 80MG TWICE PER DAY
     Route: 065

REACTIONS (4)
  - BLOOD PRESSURE DECREASED [None]
  - CIRCULATORY COLLAPSE [None]
  - DEATH [None]
  - SYNCOPE [None]
